FAERS Safety Report 10703026 (Version 1)
Quarter: 2015Q1

REPORT INFORMATION
  Report Type: Spontaneous
  Country: US (occurrence: US)
  Receive Date: 20150111
  Receipt Date: 20150111
  Transmission Date: 20150721
  Serious: Yes (Hospitalization, Other)
  Sender: FDA-Public Use
  Company Number: US-AMGEN-USASP2015000656

PATIENT
  Age: 63 Year
  Sex: Female

DRUGS (3)
  1. ENBREL [Suspect]
     Active Substance: ETANERCEPT
     Indication: RHEUMATOID ARTHRITIS
     Dosage: 50 MG EVERY 12 DAYS
     Route: 065
     Dates: start: 20050407
  2. ENBREL [Suspect]
     Active Substance: ETANERCEPT
     Indication: PSORIATIC ARTHROPATHY
  3. ENBREL [Suspect]
     Active Substance: ETANERCEPT
     Indication: PSORIASIS

REACTIONS (10)
  - Ankle operation [Recovered/Resolved]
  - Back injury [Recovered/Resolved]
  - Peripheral swelling [Not Recovered/Not Resolved]
  - Hip fracture [Recovered/Resolved]
  - Arthralgia [Not Recovered/Not Resolved]
  - Crying [Unknown]
  - Road traffic accident [Recovered/Resolved]
  - Nerve compression [Not Recovered/Not Resolved]
  - Ankle fracture [Unknown]
  - Insomnia [Not Recovered/Not Resolved]

NARRATIVE: CASE EVENT DATE: 2010
